FAERS Safety Report 6025484-7 (Version None)
Quarter: 2008Q4

REPORT INFORMATION
  Report Type: 
  Country: None (occurrence: None)
  Receive Date: 20081222
  Receipt Date: 20080930
  Transmission Date: 20090506
  Serious: No
  Sender: FDA-Public Use
  Company Number: US-WYE-H06184008

PATIENT
  Sex: Male

DRUGS (2)
  1. PRISTIQ [Suspect]
     Indication: DEPRESSION
     Dosage: 1/2 OF A 50 MG TABLET DAILY, ORAL
     Route: 048
     Dates: start: 20080920
  2. ASPIRIN [Concomitant]

REACTIONS (1)
  - INITIAL INSOMNIA [None]
